FAERS Safety Report 5956540-7 (Version None)
Quarter: 2008Q4

REPORT INFORMATION
  Report Type: 
  Country: None (occurrence: None)
  Receive Date: 20081118
  Receipt Date: 20081111
  Transmission Date: 20090506
  Serious: Yes (Other)
  Sender: FDA-Public Use
  Company Number: D0059419A

PATIENT
  Sex: Female

DRUGS (1)
  1. ATMADISC FORTE [Suspect]
     Route: 055

REACTIONS (3)
  - ATRIAL TACHYCARDIA [None]
  - CARDIAC DISORDER [None]
  - EXTRASYSTOLES [None]
